FAERS Safety Report 5652413-8 (Version None)
Quarter: 2008Q1

REPORT INFORMATION
  Report Type: 
  Country: None (occurrence: None)
  Receive Date: 20080305
  Receipt Date: 20080305
  Transmission Date: 20080703
  Serious: No
  Sender: FDA-Public Use
  Company Number: None

PATIENT
  Sex: Male
  Weight: 66.7695 kg

DRUGS (1)
  1. OXYCODONE AND ACETAMINOPHEN [Suspect]
     Indication: LUNG NEOPLASM MALIGNANT
     Dosage: 5/325 ONE - TWO Q4-6 HRS PRN PO
     Route: 048

REACTIONS (1)
  - DRUG INEFFECTIVE [None]
